FAERS Safety Report 7144819-5 (Version None)
Quarter: 2010Q4

REPORT INFORMATION
  Report Type: 
  Country: None (occurrence: None)
  Receive Date: 20101208
  Receipt Date: 20101129
  Transmission Date: 20110411
  Serious: Yes (Hospitalization)
  Sender: FDA-Public Use
  Company Number: KR-ELI_LILLY_AND_COMPANY-KR201011007508

PATIENT
  Age: 65 Year
  Sex: Female

DRUGS (4)
  1. HUMALOG MIX 75/25 [Suspect]
     Indication: DIABETES MELLITUS
     Dosage: 16 U, 2/D
     Dates: start: 20100901
  2. OTHER ANTINEOPLASTIC AGENTS [Concomitant]
     Indication: MYELOMA RECURRENCE
     Dates: start: 20100901
  3. DEXAMETHASONE [Concomitant]
     Indication: MYELOMA RECURRENCE
     Dates: start: 20100901
  4. ORAL ANTIDIABETICS [Concomitant]

REACTIONS (3)
  - BRONCHIAL DISORDER [None]
  - CHEST PAIN [None]
  - DYSPNOEA [None]
